FAERS Safety Report 9474884 (Version 1)
Quarter: 2013Q3

REPORT INFORMATION
  Report Type: Report from Study
  Country: DE (occurrence: DE)
  Receive Date: 20130823
  Receipt Date: 20130823
  Transmission Date: 20140515
  Serious: Yes (Life-Threatening, Other)
  Sender: FDA-Public Use
  Company Number: DE-ABBOTT-13P-062-1137890-00

PATIENT
  Age: 71 Year
  Sex: Male

DRUGS (6)
  1. TRENANTONE [Suspect]
     Indication: PROSTATE CANCER
     Route: 058
     Dates: start: 20121105
  2. TRENANTONE [Suspect]
     Indication: PROSTATIC SPECIFIC ANTIGEN INCREASED
  3. TRENANTONE [Suspect]
     Indication: RADIOTHERAPY
  4. ANTIANDROGENS [Concomitant]
     Indication: CONDITION AGGRAVATED
     Dates: start: 20121105
  5. ANTIANDROGENS [Concomitant]
     Indication: PROPHYLAXIS
     Dates: start: 20121106, end: 20130128
  6. CYPROTERONE ACETAT [Concomitant]
     Indication: PRODUCT USED FOR UNKNOWN INDICATION

REACTIONS (1)
  - Rectal cancer [Recovered/Resolved]
